FAERS Safety Report 9712125 (Version 1)
Quarter: 2013Q4

REPORT INFORMATION
  Report Type: Spontaneous
  Country: US (occurrence: US)
  Receive Date: 20131126
  Receipt Date: 20131126
  Transmission Date: 20140711
  Serious: Yes (Hospitalization)
  Sender: FDA-Public Use
  Company Number: US-B.I. PHARMACEUTICALS,INC./RIDGEFIELD-2013-BI-38568BP

PATIENT
  Sex: Female
  Weight: 118 kg

DRUGS (5)
  1. PRADAXA [Suspect]
     Indication: ATRIAL FIBRILLATION
     Dosage: 150 MG
     Route: 048
     Dates: start: 2010
  2. CORDARONE [Concomitant]
     Indication: ATRIAL FIBRILLATION
     Route: 048
  3. SYNTHROID [Concomitant]
     Indication: HYPOTHYROIDISM
     Route: 048
  4. ALLOPURINOL [Concomitant]
     Indication: GOUT
     Route: 048
  5. SODIUM BICARBONATE [Concomitant]
     Indication: RENAL IMPAIRMENT
     Route: 048

REACTIONS (1)
  - Arrhythmia [Recovered/Resolved]
